FAERS Safety Report 7524675-3 (Version None)
Quarter: 2011Q2

REPORT INFORMATION
  Report Type: 
  Country: None (occurrence: None)
  Receive Date: 20110525
  Receipt Date: 20110512
  Transmission Date: 20111010
  Serious: Yes (Hospitalization)
  Sender: FDA-Public Use
  Company Number: 1000021005

PATIENT
  Age: 46 Year
  Sex: Male

DRUGS (7)
  1. GABAPENTIN (GABAPENTIN) (GABAPENTIN) [Concomitant]
  2. BOTULINUM TOXIN TYPE A [Suspect]
     Dates: start: 20090101
  3. ERGENYL CHRONO (VALPROIC ACID, SODIUM VALPROATE) (VALPROIC ACID, SODIU [Concomitant]
  4. MIRTAZAPIN (MIRTAZAPINE) (MIRTAZAEPINE) [Concomitant]
  5. CARBAMAZEPINE [Suspect]
     Dates: start: 20100801
  6. CITALOPRAM HYDROBROMIDE [Suspect]
     Dates: start: 20100601
  7. KEPPRA [Concomitant]

REACTIONS (3)
  - MEMORY IMPAIRMENT [None]
  - MYOCLONUS [None]
  - AMNESTIC DISORDER [None]
